FAERS Safety Report 11247092 (Version 2)
Quarter: 2015Q3

REPORT INFORMATION
  Report Type: Spontaneous
  Country: US (occurrence: US)
  Receive Date: 20150708
  Receipt Date: 20150813
  Transmission Date: 20151125
  Serious: Yes (Hospitalization, Other)
  Sender: FDA-Public Use
  Company Number: US-PFIZER INC-2015221633

PATIENT
  Age: 82 Year
  Sex: Female

DRUGS (2)
  1. ADVIL [Suspect]
     Active Substance: IBUPROFEN
     Indication: PAIN
     Dosage: MAX TWICE A DAY OR WHEN NEEDED
     Dates: start: 2013
  2. ADVIL [Interacting]
     Active Substance: IBUPROFEN
     Dosage: MAX TWICE A DAY OR WHEN NEEDED

REACTIONS (8)
  - Drug interaction [Unknown]
  - Intentional product misuse [Not Recovered/Not Resolved]
  - Gout [Unknown]
  - Malaise [Unknown]
  - Nephrolithiasis [Unknown]
  - Pain [Unknown]
  - Feeling abnormal [Unknown]
  - Gait disturbance [Unknown]

NARRATIVE: CASE EVENT DATE: 201304
